FAERS Safety Report 6393975-5 (Version None)
Quarter: 2009Q4

REPORT INFORMATION
  Report Type: 
  Country: None (occurrence: None)
  Receive Date: 20091008
  Receipt Date: 20080925
  Transmission Date: 20100525
  Serious: Yes (Other)
  Sender: FDA-Public Use
  Company Number: US-BRISTOL-MYERS SQUIBB COMPANY-14353361

PATIENT

DRUGS (2)
  1. MEGACE [Suspect]
     Dosage: MEGESTROL SUSPENSION.
     Route: 048
  2. MEGACE ES [Suspect]
     Route: 048

REACTIONS (1)
  - DEEP VEIN THROMBOSIS [None]
